FAERS Safety Report 4927150-5 (Version None)
Quarter: 2006Q1

REPORT INFORMATION
  Report Type: 
  Country: None (occurrence: None)
  Receive Date: 20060228
  Receipt Date: 20050324
  Transmission Date: 20060701
  Serious: No
  Sender: FDA-Public Use
  Company Number: US-GLAXOSMITHKLINE-A0551124A

PATIENT
  Age: 33 Year
  Sex: Female

DRUGS (6)
  1. LAMICTAL [Suspect]
     Indication: BIPOLAR DISORDER
     Dosage: 200MG PER DAY
     Route: 048
  2. FOLIC ACID [Suspect]
     Route: 065
  3. LITHIUM [Concomitant]
  4. LEXAPRO [Concomitant]
  5. LEVOXYL [Concomitant]
  6. TOPAMAX [Concomitant]

REACTIONS (2)
  - MIGRAINE [None]
  - NIGHTMARE [None]
